FAERS Safety Report 17285028 (Version 8)
Quarter: 2020Q2

REPORT INFORMATION
  Report Type: Spontaneous
  Country: US (occurrence: US)
  Receive Date: 20200117
  Receipt Date: 20200427
  Transmission Date: 20200713
  Serious: No
  Sender: FDA-Public Use
  Company Number: US-ACTELION-A-NJ2020-200302

PATIENT
  Age: 79 Year
  Sex: Male
  Weight: 72.56 kg

DRUGS (3)
  1. OPSUMIT [Suspect]
     Active Substance: MACITENTAN
     Indication: PULMONARY ARTERIAL HYPERTENSION
     Dosage: 10 MG, QD
     Route: 048
     Dates: start: 20191214, end: 20191225
  2. ADEMPAS [Suspect]
     Active Substance: RIOCIGUAT
     Indication: PRODUCT USED FOR UNKNOWN INDICATION
     Dosage: 2 MG, TID
     Route: 048
  3. ADEMPAS [Suspect]
     Active Substance: RIOCIGUAT
     Dosage: 1.5 MG, TID
     Route: 048

REACTIONS (11)
  - Sputum discoloured [Unknown]
  - Hypotension [Unknown]
  - Oedema peripheral [Unknown]
  - Productive cough [Unknown]
  - Therapy non-responder [Not Recovered/Not Resolved]
  - Malaise [Unknown]
  - Gait disturbance [Not Recovered/Not Resolved]
  - Cough [Recovering/Resolving]
  - Gastrooesophageal reflux disease [Not Recovered/Not Resolved]
  - Decreased appetite [Unknown]
  - Rales [Unknown]

NARRATIVE: CASE EVENT DATE: 201912
